FAERS Safety Report 4672638-8 (Version None)
Quarter: 2005Q2

REPORT INFORMATION
  Report Type: 
  Country: None (occurrence: None)
  Receive Date: 20050524
  Receipt Date: 20050516
  Transmission Date: 20051028
  Serious: Yes (Hospitalization)
  Sender: FDA-Public Use
  Company Number: US-GLAXOSMITHKLINE-A0558722A

PATIENT
  Age: 64 Year
  Sex: Female
  Weight: 52 kg

DRUGS (5)
  1. CITRUCEL SUGAR-FREE SUSPENSION ORANGE [Suspect]
     Indication: CONSTIPATION
     Route: 048
     Dates: end: 20050512
  2. CITRUCEL REGULAR SUSPENSION [Suspect]
     Indication: CONSTIPATION
     Route: 048
     Dates: start: 19890101
  3. EQUATE STOOL SOFTNER [Concomitant]
  4. FOSAMAX [Concomitant]
     Indication: OSTEOPOROSIS
  5. CALCIUM GLUCONATE [Concomitant]

REACTIONS (7)
  - ABDOMINAL DISTENSION [None]
  - ABDOMINAL PAIN [None]
  - BREAST CANCER [None]
  - FLATULENCE [None]
  - HOT FLUSH [None]
  - INGUINAL HERNIA [None]
  - VOLVULUS OF BOWEL [None]
